FAERS Safety Report 12696793 (Version 1)
Quarter: 2016Q3

REPORT INFORMATION
  Report Type: Spontaneous
  Country: US (occurrence: None)
  Receive Date: 20160829
  Receipt Date: 20160829
  Transmission Date: 20161109
  Serious: Yes (Death, Hospitalization)
  Sender: FDA-Public Use
  Company Number: None

PATIENT
  Age: 86 Year
  Sex: Male
  Weight: 68.04 kg

DRUGS (3)
  1. IPILIMUMAB [Suspect]
     Active Substance: IPILIMUMAB
  2. OPDIVO [Suspect]
     Active Substance: NIVOLUMAB
     Indication: MELANOMA RECURRENT
     Route: 042
     Dates: start: 20160125, end: 20160222
  3. OPDIVO [Suspect]
     Active Substance: NIVOLUMAB
     Indication: MALIGNANT MELANOMA
     Route: 042
     Dates: start: 20160125, end: 20160222

REACTIONS (9)
  - Amnesia [None]
  - Abasia [None]
  - Renal failure [None]
  - Pneumonia [None]
  - Hallucination [None]
  - Fatigue [None]
  - Adverse event [None]
  - Functional gastrointestinal disorder [None]
  - Sepsis [None]

NARRATIVE: CASE EVENT DATE: 20160212
